FAERS Safety Report 8471197-1 (Version None)
Quarter: 2012Q2

REPORT INFORMATION
  Report Type: 
  Country: None (occurrence: None)
  Receive Date: 20120627
  Receipt Date: 20120615
  Transmission Date: 20120825
  Serious: Yes (Hospitalization, Other)
  Sender: FDA-Public Use
  Company Number: MX-PFIZER INC-2012149987

PATIENT
  Age: 82 Year
  Sex: Male

DRUGS (1)
  1. RAMIPRIL [Suspect]
     Dosage: 2.5 MG, 1X/DAY
     Route: 048
     Dates: start: 20060101, end: 20120516

REACTIONS (5)
  - PARAESTHESIA [None]
  - HYPERTENSION [None]
  - THROMBOSIS [None]
  - HAEMATOMA [None]
  - MYOCARDIAL INFARCTION [None]
